FAERS Safety Report 20112121 (Version 1)
Quarter: 2021Q4

REPORT INFORMATION
  Report Type: Spontaneous
  Country: US (occurrence: US)
  Receive Date: 20211125
  Receipt Date: 20211125
  Transmission Date: 20220303
  Serious: No
  Sender: FDA-Public Use
  Company Number: US-GSKCCFUS-Case-01222232_AE-71625

PATIENT
  Sex: Female

DRUGS (3)
  1. TRELEGY ELLIPTA [Interacting]
     Active Substance: FLUTICASONE FUROATE\UMECLIDINIUM BROMIDE\VILANTEROL TRIFENATATE
     Indication: Chronic obstructive pulmonary disease
     Dosage: 1 PUFF(S), QD 100/62.5/25MCG  EVERY MORNING
     Route: 055
     Dates: start: 2021
  2. ALBUTEROL\IPRATROPIUM BROMIDE [Suspect]
     Active Substance: ALBUTEROL\IPRATROPIUM BROMIDE
     Indication: Product used for unknown indication
     Dosage: UNK
  3. ALBUTEROL SULFATE NEBULIZER SOLUTION [Concomitant]
     Indication: Product used for unknown indication
     Dosage: UNK (0.083% 2.5 MG MANUFACTURER : MYL)

REACTIONS (2)
  - Drug ineffective [Unknown]
  - Labelled drug-drug interaction issue [Unknown]
